FAERS Safety Report 25960763 (Version 2)
Quarter: 2025Q4

REPORT INFORMATION
  Report Type: Spontaneous
  Country: CN (occurrence: CN)
  Receive Date: 20251027
  Receipt Date: 20251030
  Transmission Date: 20260118
  Serious: Yes (Death)
  Sender: SHANGHAI HENGRUI PHARMACEUTICAL
  Company Number: CN-Shanghai Hengrui Pharmaceutical Co., Ltd.-2187336

PATIENT
  Age: 86 Year
  Sex: Male
  Weight: 69 kg

DRUGS (7)
  1. SEVOFLURANE [Suspect]
     Active Substance: SEVOFLURANE
     Indication: Maintenance of anaesthesia
     Dates: start: 20251017, end: 20251017
  2. PROPOFOL [Suspect]
     Active Substance: PROPOFOL
     Dates: start: 20251017, end: 20251017
  3. SODIUM CHLORIDE [Concomitant]
     Active Substance: SODIUM CHLORIDE
     Dates: start: 20251017, end: 20251017
  4. ROCURONIUM BROMIDE [Suspect]
     Active Substance: ROCURONIUM BROMIDE
     Dates: start: 20251017, end: 20251017
  5. CEFUROXIME SODIUM [Suspect]
     Active Substance: CEFUROXIME SODIUM
     Dates: start: 20251017, end: 20251017
  6. SUFENTANIL CITRATE [Suspect]
     Active Substance: SUFENTANIL CITRATE
     Dates: start: 20251017, end: 20251017
  7. DEXAMETHASONE SODIUM PHOSPHATE [Suspect]
     Active Substance: DEXAMETHASONE SODIUM PHOSPHATE
     Dates: start: 20251017, end: 20251017

REACTIONS (1)
  - Anaphylactic shock [Fatal]

NARRATIVE: CASE EVENT DATE: 20251017
